FAERS Safety Report 20602228 (Version 6)
Quarter: 2024Q2

REPORT INFORMATION
  Report Type: Spontaneous
  Country: FI (occurrence: FI)
  Receive Date: 20220316
  Receipt Date: 20240401
  Transmission Date: 20240716
  Serious: Yes (Hospitalization, Other)
  Sender: FDA-Public Use
  Company Number: FI-MYLANLABS-2022M1019449

PATIENT
  Sex: Female

DRUGS (23)
  1. CLOZAPINE [Suspect]
     Active Substance: CLOZAPINE
     Indication: Schizophrenia
     Dosage: UNK
     Route: 065
  2. CLOZAPINE [Suspect]
     Active Substance: CLOZAPINE
     Indication: Schizophrenia
     Dosage: UNK
     Route: 065
     Dates: start: 2006, end: 2015
  3. CLOZAPINE [Suspect]
     Active Substance: CLOZAPINE
     Dosage: 650 MILLIGRAM, QD
     Route: 065
     Dates: start: 2016, end: 201812
  4. CLOZAPINE [Suspect]
     Active Substance: CLOZAPINE
     Dosage: 200 MILLIGRAM, QD
     Route: 065
     Dates: start: 202201
  5. CLOZAPINE [Suspect]
     Active Substance: CLOZAPINE
     Dosage: UNK
     Route: 065
     Dates: start: 20220125, end: 20220224
  6. CLOZAPINE [Suspect]
     Active Substance: CLOZAPINE
     Dosage: UNK, QD (50 + 150 MILLIGRAM, QD)
     Route: 065
     Dates: start: 20220224, end: 20220311
  7. CLOZAPINE [Suspect]
     Active Substance: CLOZAPINE
     Dosage: UNK, MONTHLY,UNK, QMO
     Route: 065
     Dates: start: 20220125, end: 20220224
  8. VALPROATE [Suspect]
     Active Substance: VALPROIC ACID
     Indication: Schizophrenia
     Dosage: UNK
     Route: 065
     Dates: start: 2018, end: 201812
  9. LITHIUM [Concomitant]
     Active Substance: LITHIUM
     Indication: Product used for unknown indication
     Dosage: UNK
     Route: 065
  10. LITHIUM [Concomitant]
     Active Substance: LITHIUM
     Dosage: UNK
     Route: 065
     Dates: start: 20220125
  11. BISOPROLOL [Concomitant]
     Active Substance: BISOPROLOL\BISOPROLOL FUMARATE
     Indication: Product used for unknown indication
     Dosage: UNK
     Route: 065
  12. LITHIUM CARBONATE [Concomitant]
     Active Substance: LITHIUM CARBONATE
     Indication: Product used for unknown indication
     Dosage: UNK
     Route: 065
     Dates: start: 20220125
  13. ATORVASTATIN [Concomitant]
     Active Substance: ATORVASTATIN
     Indication: Product used for unknown indication
     Dosage: UNK
     Route: 065
  14. ATORVASTATIN [Concomitant]
     Active Substance: ATORVASTATIN
     Dosage: UNK
     Route: 065
  15. MEDITHYROX [Concomitant]
     Indication: Product used for unknown indication
     Dosage: UNK
     Route: 065
     Dates: start: 20220212
  16. METFORMIN HYDROCHLORIDE [Concomitant]
     Active Substance: METFORMIN HYDROCHLORIDE
     Indication: Product used for unknown indication
     Dosage: UNK
     Route: 065
  17. AMLODIPINE BESYLATE [Concomitant]
     Active Substance: AMLODIPINE BESYLATE
     Indication: Product used for unknown indication
     Dosage: UNK
     Route: 065
  18. MELATONIN VITABALANS [Concomitant]
     Indication: Product used for unknown indication
     Dosage: UNK
     Route: 065
  19. AMISULPRIDE [Concomitant]
     Active Substance: AMISULPRIDE
     Indication: Product used for unknown indication
     Dosage: 500 MILLIGRAM, QD
     Route: 065
     Dates: end: 20220124
  20. AMISULPRIDE [Concomitant]
     Active Substance: AMISULPRIDE
     Dosage: 500 MILLIGRAM, QD
     Route: 065
     Dates: start: 20220125, end: 20220125
  21. AMISULPRIDE [Concomitant]
     Active Substance: AMISULPRIDE
     Dosage: UNK
     Route: 065
     Dates: start: 20220126, end: 20220215
  22. AMISULPRIDE [Concomitant]
     Active Substance: AMISULPRIDE
     Dosage: UNK
     Route: 065
     Dates: end: 20220124
  23. AMISULPRIDE [Concomitant]
     Active Substance: AMISULPRIDE
     Dosage: 500 MILLIGRAM
     Route: 065
     Dates: start: 20220126, end: 20220215

REACTIONS (4)
  - Neutropenia [Unknown]
  - White blood cell count decreased [Unknown]
  - Off label use [Unknown]
  - Drug ineffective [Unknown]

NARRATIVE: CASE EVENT DATE: 20160101
